FAERS Safety Report 25688082 (Version 1)
Quarter: 2025Q3

REPORT INFORMATION
  Report Type: Report from Study
  Country: CO (occurrence: CO)
  Receive Date: 20250818
  Receipt Date: 20250818
  Transmission Date: 20251020
  Serious: Yes (Hospitalization)
  Sender: JOHNSON AND JOHNSON
  Company Number: CO-JNJFOC-20250814304

PATIENT
  Age: 86 Year
  Sex: Female
  Weight: 48 kg

DRUGS (1)
  1. SIMPONI [Suspect]
     Active Substance: GOLIMUMAB
     Indication: Rheumatoid arthritis
     Route: 058
     Dates: start: 20240910

REACTIONS (2)
  - Haematochezia [Unknown]
  - Vomiting [Unknown]

NARRATIVE: CASE EVENT DATE: 20250727
